FAERS Safety Report 5962444-6 (Version None)
Quarter: 2008Q4

REPORT INFORMATION
  Report Type: 
  Country: None (occurrence: None)
  Receive Date: 20081121
  Receipt Date: 20081114
  Transmission Date: 20090506
  Serious: Yes (Other)
  Sender: FDA-Public Use
  Company Number: PHHY2008JP23447

PATIENT
  Sex: Male

DRUGS (3)
  1. LAMISIL [Suspect]
     Dosage: 125 MG/DAY
     Route: 048
     Dates: start: 20080809, end: 20080927
  2. LAMISIL [Suspect]
     Indication: TINEA PEDIS
     Dosage: UNK
     Dates: start: 20080927, end: 20081001
  3. ASTAT [Concomitant]

REACTIONS (4)
  - LIVER DISORDER [None]
  - MONOCYTE COUNT INCREASED [None]
  - NEUTROPHIL COUNT DECREASED [None]
  - WHITE BLOOD CELL COUNT DECREASED [None]
